FAERS Safety Report 7733997-2 (Version None)
Quarter: 2011Q3

REPORT INFORMATION
  Report Type: 
  Country: None (occurrence: None)
  Receive Date: 20110907
  Receipt Date: 20110826
  Transmission Date: 20111222
  Serious: Yes (Hospitalization, Other)
  Sender: FDA-Public Use
  Company Number: CA-ELI_LILLY_AND_COMPANY-CA201105005224

PATIENT
  Sex: Female

DRUGS (37)
  1. WARFARIN [Concomitant]
  2. PAXIL [Concomitant]
     Dosage: 20 MG, QD
  3. DICETEL [Concomitant]
     Indication: IRRITABLE BOWEL SYNDROME
     Dosage: 50 MG, TID
  4. PANTOLOC                           /01263202/ [Concomitant]
     Indication: ABDOMINAL DISCOMFORT
  5. NOVO-HYDRAZIDE [Concomitant]
     Indication: BLOOD PRESSURE
  6. AMITRIPTYLINE HCL [Concomitant]
     Indication: SLEEP DISORDER
     Dosage: 50 MG, QD
  7. ASPIRIN [Concomitant]
     Indication: TRANSIENT ISCHAEMIC ATTACK
     Dosage: 325 MG, QD
  8. IMURAN [Concomitant]
     Indication: CROHN'S DISEASE
     Dosage: 200 MG, QD
  9. ALBUTEROL [Concomitant]
     Indication: ASTHMA
  10. VENTOLIN [Concomitant]
  11. ATARAX [Concomitant]
  12. IMOVANE [Concomitant]
     Indication: SLEEP DISORDER
  13. FORTEO [Suspect]
     Indication: OSTEOPOROSIS
     Dosage: 20 UG, QD
     Route: 058
     Dates: start: 20110406
  14. CRESTOR [Concomitant]
     Dosage: 10 MG, QD
  15. LUMIGAN [Concomitant]
     Indication: GLAUCOMA
     Route: 047
  16. FLOVENT [Concomitant]
     Indication: ASTHMA
  17. DOMPERIDONE [Concomitant]
  18. NITRO                              /00003201/ [Concomitant]
  19. HYDROXIZINE [Concomitant]
     Indication: PRURITUS
  20. ZINC [Concomitant]
  21. LACTULOSE [Concomitant]
     Indication: CONSTIPATION
  22. LYRICA [Concomitant]
     Indication: FIBROMYALGIA
     Dosage: 150 MG, TID
  23. RAMIPRIL [Concomitant]
     Indication: HYPERTENSION
     Dosage: 5 MG, QD
  24. SERC                               /00034201/ [Concomitant]
     Indication: DIZZINESS
  25. POTASSIUM [Concomitant]
  26. ACTONEL [Concomitant]
     Indication: BONE DISORDER
  27. VITAMIN D [Concomitant]
     Dosage: 2000 U, QD
  28. COMBIGAN [Concomitant]
     Indication: GLAUCOMA
     Dosage: UNK
  29. SYNTHROID [Concomitant]
     Dosage: 50 UG, QD
  30. BACLOFEN [Concomitant]
     Indication: MUSCLE SPASMS
  31. DICLOFENAC SODIUM [Concomitant]
     Indication: ARTHRITIS
  32. BECLOMETHASONE DIPROPIONATE [Concomitant]
     Indication: RHINITIS
  33. PERCOCET [Concomitant]
     Indication: PAIN
  34. FERROUS GLUCONATE [Concomitant]
     Indication: BLOOD IRON
  35. FORTEO [Suspect]
     Dosage: 20 UG, QD
     Route: 058
  36. CALCIUM CARBONATE [Concomitant]
     Dosage: 2500 MG, BID
  37. DILTIAZEM [Concomitant]
     Dosage: 240 MG, QD

REACTIONS (8)
  - LOSS OF CONSCIOUSNESS [None]
  - VERTIGO [None]
  - DEPRESSION [None]
  - PNEUMONIA [None]
  - CORONARY ARTERY DISEASE [None]
  - OSTEOARTHRITIS [None]
  - MIGRAINE [None]
  - PULMONARY EMBOLISM [None]
